FAERS Safety Report 8581245-6 (Version None)
Quarter: 2012Q3

REPORT INFORMATION
  Report Type: 
  Country: None (occurrence: None)
  Receive Date: 20120809
  Receipt Date: 20120804
  Transmission Date: 20120928
  Serious: Yes (Other)
  Sender: FDA-Public Use
  Company Number: PHHY2012GB067550

PATIENT
  Age: 34 Year
  Sex: Female

DRUGS (1)
  1. PILOCARPINE [Suspect]
     Indication: IRIDOTOMY

REACTIONS (1)
  - ANGLE CLOSURE GLAUCOMA [None]
